FAERS Safety Report 21918822 (Version 1)
Quarter: 2023Q1

REPORT INFORMATION
  Report Type: Spontaneous
  Country: AR (occurrence: None)
  Receive Date: 20230127
  Receipt Date: 20230127
  Transmission Date: 20230417
  Serious: Yes (Hospitalization)
  Sender: FDA-Public Use
  Company Number: AR-ROCHE-3268956

PATIENT
  Age: 43 Year
  Sex: Female

DRUGS (1)
  1. OCREVUS [Suspect]
     Active Substance: OCRELIZUMAB
     Indication: Relapsing-remitting multiple sclerosis
     Dosage: DOSE AND FREQUENCY WERE NOT REPORTED, LAST RECEIVED OCRELIZUMAB ON 03-AUG-2022.
     Route: 065
     Dates: start: 20201102

REACTIONS (1)
  - Pneumonia [Unknown]
